FAERS Safety Report 10922866 (Version 2)
Quarter: 2015Q1

REPORT INFORMATION
  Report Type: Report from Study
  Country: NL (occurrence: NL)
  Receive Date: 20150317
  Receipt Date: 20150320
  Transmission Date: 20150721
  Serious: Yes (Death)
  Sender: FDA-Public Use
  Company Number: NL-ROCHE-1552173

PATIENT
  Age: 69 Year
  Sex: Female

DRUGS (5)
  1. PERTUZUMAB [Suspect]
     Active Substance: PERTUZUMAB
     Indication: BREAST CANCER
     Dosage: MOST RECENT DOSE PRIOR TO SAE ON 06/MAR/2015
     Route: 042
     Dates: start: 20150123
  2. EPIRUBICIN [Suspect]
     Active Substance: EPIRUBICIN
     Indication: BREAST CANCER
     Dosage: MOST RECENT DOSE PRIOR TO SAE ON 06/MAR/2015
     Route: 042
     Dates: start: 20150123
  3. CYCLOPHOSPHAMIDE. [Suspect]
     Active Substance: CYCLOPHOSPHAMIDE
     Indication: BREAST CANCER
     Dosage: MOST RECENT DOSE PRIOR TO SAE ON 06/MAR/2015
     Route: 042
     Dates: start: 20150123
  4. TRASTUZUMAB [Suspect]
     Active Substance: TRASTUZUMAB
     Indication: BREAST CANCER
     Dosage: MOST RECENT DOSE PRIOR TO SAE ON 06/MAR/2015
     Route: 042
     Dates: start: 20150123
  5. FLUOROURACIL. [Suspect]
     Active Substance: FLUOROURACIL
     Indication: BREAST CANCER
     Dosage: MOST RECENT DOSE PRIOR TO SAE ON 06/MAR/2015
     Route: 042
     Dates: start: 20150123

REACTIONS (1)
  - Pulmonary embolism [Fatal]

NARRATIVE: CASE EVENT DATE: 20150312
